FAERS Safety Report 26216802 (Version 1)
Quarter: 2025Q4

REPORT INFORMATION
  Report Type: Spontaneous
  Country: US (occurrence: US)
  Receive Date: 20251231
  Receipt Date: 20251231
  Transmission Date: 20260117
  Serious: No
  Sender: SUNOVION
  Company Number: US-SMPA-2025SPA017076

PATIENT
  Age: 66 Year
  Sex: Female

DRUGS (1)
  1. GEMTESA [Suspect]
     Active Substance: VIBEGRON
     Indication: Product used for unknown indication
     Dosage: 75 MG
     Route: 048

REACTIONS (4)
  - Headache [Recovering/Resolving]
  - Urinary retention [Recovering/Resolving]
  - Sinus disorder [Recovering/Resolving]
  - Back pain [Recovering/Resolving]
